FAERS Safety Report 22964242 (Version 2)
Quarter: 2023Q4

REPORT INFORMATION
  Report Type: Report from Study
  Country: CO (occurrence: CO)
  Receive Date: 20230921
  Receipt Date: 20231106
  Transmission Date: 20240110
  Serious: Yes (Hospitalization)
  Sender: FDA-Public Use
  Company Number: CO-UCBSA-2023042343

PATIENT
  Age: 63 Year
  Sex: Female
  Weight: 61 kg

DRUGS (8)
  1. ROTIGOTINE [Suspect]
     Active Substance: ROTIGOTINE
     Indication: Parkinson^s disease
     Dosage: 8 MILLIGRAM, ONCE DAILY (QD)
     Route: 062
     Dates: start: 20230103, end: 20230605
  2. ROTIGOTINE [Suspect]
     Active Substance: ROTIGOTINE
     Dosage: 8 MILLIGRAM, ONCE DAILY (QD)
     Route: 062
     Dates: start: 20230829, end: 20230912
  3. ROTIGOTINE [Suspect]
     Active Substance: ROTIGOTINE
     Dosage: 4 MILLIGRAM, ONCE DAILY (QD)
     Route: 062
     Dates: start: 20230913
  4. CARBIDOPA\LEVODOPA [Concomitant]
     Active Substance: CARBIDOPA\LEVODOPA
     Indication: Parkinson^s disease
     Dosage: 25/250 MG, 8 HOURS
     Route: 048
     Dates: end: 20230912
  5. SERTRALINE [Concomitant]
     Active Substance: SERTRALINE HYDROCHLORIDE
     Indication: Product used for unknown indication
     Dosage: 100 MILLIGRAM, ONCE DAILY (QD)
     Route: 048
  6. OMEPRAZOLE [Concomitant]
     Active Substance: OMEPRAZOLE
     Indication: Product used for unknown indication
     Dosage: 40 MILLIGRAM, ONCE DAILY (QD)
     Route: 048
  7. STALEVO [Concomitant]
     Active Substance: CARBIDOPA\ENTACAPONE\LEVODOPA
     Indication: Parkinson^s disease
     Dosage: UNK MG
     Route: 048
     Dates: start: 20230913
  8. SAFINAMIDE [Concomitant]
     Active Substance: SAFINAMIDE
     Indication: Parkinson^s disease
     Dosage: UNK MG
     Route: 048

REACTIONS (10)
  - Tremor [Recovered/Resolved]
  - Vomiting [Recovered/Resolved]
  - Discouragement [Recovered/Resolved]
  - Headache [Recovered/Resolved]
  - Balance disorder [Recovered/Resolved]
  - Hyperhidrosis [Recovered/Resolved]
  - Blood pressure increased [Recovered/Resolved]
  - Oxygen saturation decreased [Recovered/Resolved]
  - Dizziness [Recovered/Resolved]
  - Inappropriate schedule of product administration [Unknown]

NARRATIVE: CASE EVENT DATE: 20230103
